FAERS Safety Report 12476072 (Version 1)
Quarter: 2016Q2

REPORT INFORMATION
  Report Type: Spontaneous
  Country: US (occurrence: US)
  Receive Date: 20160617
  Receipt Date: 20160617
  Transmission Date: 20160815
  Serious: Yes (Hospitalization, Other)
  Sender: FDA-Public Use
  Company Number: US-ELI_LILLY_AND_COMPANY-US201606004906

PATIENT
  Sex: Female
  Weight: 47 kg

DRUGS (2)
  1. REMODULIN [Suspect]
     Active Substance: TREPROSTINIL
     Indication: PULMONARY HYPERTENSION
     Dosage: 95 NG/KG/MIN, CONTINUOUS
     Route: 058
     Dates: start: 20141112
  2. ADCIRCA [Suspect]
     Active Substance: TADALAFIL
     Indication: PRODUCT USED FOR UNKNOWN INDICATION
     Dosage: UNK, UNKNOWN
     Route: 065

REACTIONS (5)
  - Haematoma [Unknown]
  - Cyst [Unknown]
  - Nephropathy toxic [Recovering/Resolving]
  - Medical device site infection [Unknown]
  - Hypersensitivity [Unknown]
